FAERS Safety Report 8088585-8 (Version None)
Quarter: 2012Q1

REPORT INFORMATION
  Report Type: 
  Country: None (occurrence: None)
  Receive Date: 20120128
  Receipt Date: 20110407
  Transmission Date: 20120608
  Serious: No
  Sender: FDA-Public Use
  Company Number: US-ABBOTT-11P-163-0717638-00

PATIENT
  Sex: Female
  Weight: 72.64 kg

DRUGS (9)
  1. FLU SHOT [Suspect]
     Indication: PROPHYLAXIS
     Dates: start: 20101101, end: 20101101
  2. ALDACTONE [Concomitant]
     Indication: HYPERTENSION
  3. PLAQUENIL [Concomitant]
     Indication: RHEUMATOID ARTHRITIS
     Dates: start: 20110201
  4. BENICAR HCT [Concomitant]
     Indication: HYPERTENSION
     Dosage: 40/25MG
  5. PAXIL [Concomitant]
     Indication: DEPRESSION
  6. FLEXERIL [Concomitant]
     Indication: MUSCLE SPASMS
  7. HUMIRA [Suspect]
     Route: 058
     Dates: start: 20110201
  8. HUMIRA [Suspect]
     Indication: RHEUMATOID ARTHRITIS
     Route: 058
     Dates: start: 20070101, end: 20101101
  9. PHENOBARBITAL TAB [Concomitant]
     Indication: CONVULSION
     Dosage: AT BEDTIME

REACTIONS (5)
  - RHINORRHOEA [None]
  - PYREXIA [None]
  - OROPHARYNGEAL PAIN [None]
  - ARTHRALGIA [None]
  - INFLUENZA [None]
